FAERS Safety Report 6180436-1 (Version None)
Quarter: 2009Q2

REPORT INFORMATION
  Report Type: 
  Country: None (occurrence: None)
  Receive Date: 20090506
  Receipt Date: 20090424
  Transmission Date: 20091009
  Serious: Yes (Hospitalization)
  Sender: FDA-Public Use
  Company Number: DE-JNJFOC-20090402628

PATIENT
  Age: 3 Decade
  Sex: Male
  Weight: 87 kg

DRUGS (2)
  1. INVEGA [Suspect]
     Indication: ACUTE PSYCHOSIS
     Route: 048
  2. TAVOR [Concomitant]
     Route: 065

REACTIONS (3)
  - ALANINE AMINOTRANSFERASE INCREASED [None]
  - ASPARTATE AMINOTRANSFERASE INCREASED [None]
  - GLUTAMATE DEHYDROGENASE INCREASED [None]
